FAERS Safety Report 10081098 (Version 1)
Quarter: 2014Q2

REPORT INFORMATION
  Report Type: Spontaneous
  Country: GR (occurrence: None)
  Receive Date: 20140414
  Receipt Date: 20140414
  Transmission Date: 20141212
  Serious: Yes (Hospitalization)
  Sender: FDA-Public Use
  Company Number: 7280837

PATIENT
  Age: 56 Year
  Sex: Female

DRUGS (1)
  1. LEVOTHYROXINE (LEVOTHYROXINE) (LEVOTHYROXINE SODIUM) [Suspect]
     Indication: HYPOTHYROIDISM

REACTIONS (5)
  - Osteoporotic fracture [None]
  - Hip fracture [None]
  - Renal osteodystrophy [None]
  - Anaemia [None]
  - Hypergammaglobulinaemia [None]
